FAERS Safety Report 5018674-3 (Version None)
Quarter: 2006Q2

REPORT INFORMATION
  Report Type: 
  Country: None (occurrence: None)
  Receive Date: 20060530
  Receipt Date: 20060512
  Transmission Date: 20061013
  Serious: Yes (Hospitalization)
  Sender: FDA-Public Use
  Company Number: PHO-2006-017

PATIENT
  Age: 73 Year
  Sex: Female

DRUGS (1)
  1. PHOTOFRIN [Suspect]
     Indication: LIP AND/OR ORAL CAVITY CANCER STAGE 0
     Dosage: 2.0 MG/KG IV
     Route: 042
     Dates: start: 20040301

REACTIONS (5)
  - NEOPLASM MALIGNANT [None]
  - OEDEMA MOUTH [None]
  - ORAL INTAKE REDUCED [None]
  - PAIN [None]
  - PHARYNGOLARYNGEAL PAIN [None]
